FAERS Safety Report 8958386 (Version 1)
Quarter: 2012Q4

REPORT INFORMATION
  Report Type: 
  Country: JP (occurrence: JP)
  Receive Date: 20121210
  Receipt Date: 20121210
  Transmission Date: 20130627
  Serious: Yes (Life-Threatening, Hospitalization)
  Sender: FDA-Public Use
  Company Number: JP-GLAXOSMITHKLINE-B0795258A

PATIENT
  Age: 45 Year
  Sex: Female
  Weight: 161 kg

DRUGS (1)
  1. HYCAMTIN [Suspect]
     Indication: OVARIAN CANCER RECURRENT
     Route: 042
     Dates: start: 20120312, end: 20120316

REACTIONS (2)
  - Agranulocytosis [Not Recovered/Not Resolved]
  - Febrile neutropenia [Recovering/Resolving]
